FAERS Safety Report 7270706-8 (Version None)
Quarter: 2011Q1

REPORT INFORMATION
  Report Type: 
  Country: None (occurrence: None)
  Receive Date: 20110202
  Receipt Date: 20110127
  Transmission Date: 20110831
  Serious: Yes (Hospitalization)
  Sender: FDA-Public Use
  Company Number: B0696669A

PATIENT
  Sex: Male

DRUGS (2)
  1. DEROXAT [Suspect]
     Indication: AFFECTIVE DISORDER
     Route: 065
     Dates: start: 20101102
  2. ATHYMIL [Concomitant]
     Route: 065
     Dates: start: 20091006

REACTIONS (5)
  - OCULAR HYPERTENSION [None]
  - CONJUNCTIVITIS [None]
  - VISUAL ACUITY REDUCED [None]
  - UVEITIS [None]
  - EYE PAIN [None]
